FAERS Safety Report 10213444 (Version 1)
Quarter: 2014Q2

REPORT INFORMATION
  Report Type: Spontaneous
  Country: GB (occurrence: GB)
  Receive Date: 20140603
  Receipt Date: 20140603
  Transmission Date: 20141212
  Serious: Yes (Other)
  Sender: FDA-Public Use
  Company Number: GB-BAYER-2014-079443

PATIENT
  Age: 41 Year
  Sex: Female

DRUGS (1)
  1. CANESTEN 500MG VAGINAL PESSARY [Suspect]
     Indication: VULVOVAGINAL CANDIDIASIS
     Dosage: 500 MG, UNK
     Route: 067
     Dates: start: 20140519

REACTIONS (3)
  - Vaginal haemorrhage [Recovered/Resolved]
  - Abortion spontaneous [None]
  - Maternal exposure during pregnancy [None]
